FAERS Safety Report 24411596 (Version 1)
Quarter: 2024Q4

REPORT INFORMATION
  Report Type: Spontaneous
  Country: US (occurrence: None)
  Receive Date: 20241007
  Receipt Date: 20241007
  Transmission Date: 20250115
  Serious: No
  Sender: Public
  Company Number: None

PATIENT
  Age: 34 Year
  Sex: Female
  Weight: 58.95 kg

DRUGS (2)
  1. MEMANTINE HYDROCHLORIDE [Suspect]
     Active Substance: MEMANTINE HYDROCHLORIDE
     Indication: Compulsions
     Dosage: FREQUENCY : DAILY;?
     Route: 048
     Dates: start: 20240823
  2. TRINTELLIX [Concomitant]
     Active Substance: VORTIOXETINE HYDROBROMIDE

REACTIONS (5)
  - Brain fog [None]
  - Tachyphrenia [None]
  - Speech disorder [None]
  - Anxiety [None]
  - Hypomania [None]

NARRATIVE: CASE EVENT DATE: 20240910
